FAERS Safety Report 6443154-8 (Version None)
Quarter: 2009Q4

REPORT INFORMATION
  Report Type: 
  Country: None (occurrence: None)
  Receive Date: 20091117
  Receipt Date: 20091109
  Transmission Date: 20100525
  Serious: Yes (Life-Threatening)
  Sender: FDA-Public Use
  Company Number: B0598709A

PATIENT
  Sex: Female
  Weight: 45 kg

DRUGS (2)
  1. TYKERB [Suspect]
     Indication: BREAST CANCER
     Route: 048
     Dates: start: 20090824, end: 20090828
  2. CAPECITABINE [Suspect]
     Route: 048
     Dates: start: 20090824, end: 20090828

REACTIONS (1)
  - HEPATIC FUNCTION ABNORMAL [None]
